FAERS Safety Report 7621955-8 (Version None)
Quarter: 2011Q3

REPORT INFORMATION
  Report Type: 
  Country: None (occurrence: None)
  Receive Date: 20110720
  Receipt Date: 20101109
  Transmission Date: 20111222
  Serious: No
  Sender: FDA-Public Use
  Company Number: US-BAYER-2010-000938

PATIENT
  Age: 71 Year
  Sex: Female
  Weight: 54 kg

DRUGS (5)
  1. ONE A DAY ENERGY [Suspect]
     Indication: VITAMIN SUPPLEMENTATION
     Route: 048
  2. DYAZIDE [Concomitant]
  3. ASPIRIN [Concomitant]
     Dosage: 81 MG, UNK
     Route: 048
  4. PLAVIX [Concomitant]
  5. METOPROLOL TARTRATE [Suspect]

REACTIONS (1)
  - BLOOD POTASSIUM INCREASED [None]
